FAERS Safety Report 25511757 (Version 1)
Quarter: 2025Q3

REPORT INFORMATION
  Report Type: Spontaneous
  Country: US (occurrence: US)
  Receive Date: 20250703
  Receipt Date: 20250703
  Transmission Date: 20251020
  Serious: No
  Sender: RADIUS PHARM
  Company Number: US-RADIUS HEALTH INC.-2024US004229

PATIENT
  Sex: Female

DRUGS (1)
  1. TYMLOS [Suspect]
     Active Substance: ABALOPARATIDE
     Indication: Osteoporosis
     Route: 058
     Dates: start: 20240512

REACTIONS (7)
  - Myalgia [Not Recovered/Not Resolved]
  - Pain in extremity [Not Recovered/Not Resolved]
  - Pyrexia [Not Recovered/Not Resolved]
  - Lower limb fracture [Unknown]
  - Product quality issue [Unknown]
  - Limb discomfort [Unknown]
  - Pain [Unknown]
